FAERS Safety Report 9867772 (Version 2)
Quarter: 2014Q1

REPORT INFORMATION
  Report Type: Report from Study
  Country: CA (occurrence: CA)
  Receive Date: 20140204
  Receipt Date: 20140218
  Transmission Date: 20141002
  Serious: Yes (Hospitalization)
  Sender: FDA-Public Use
  Company Number: CA-JNJFOC-20140118733

PATIENT
  Age: 55 Year
  Sex: Female
  Weight: 37.47 kg

DRUGS (6)
  1. REMICADE [Suspect]
     Indication: RHEUMATOID ARTHRITIS
     Route: 042
     Dates: start: 20120103, end: 20140128
  2. CYMBALTA [Concomitant]
     Route: 065
  3. OMEPRAZOLE [Concomitant]
     Route: 065
  4. DOMPERIDONE [Concomitant]
     Route: 065
  5. HYDROXYCHLOROQUINE [Concomitant]
     Route: 065
  6. METHOTREXATE [Concomitant]
     Route: 065

REACTIONS (4)
  - Intestinal obstruction [Recovered/Resolved]
  - Drug effect decreased [Recovered/Resolved]
  - Rheumatoid arthritis [Recovered/Resolved]
  - Breast pain [Recovered/Resolved]
